FAERS Safety Report 15993049 (Version 5)
Quarter: 2024Q4

REPORT INFORMATION
  Report Type: Spontaneous
  Country: CA (occurrence: CA)
  Receive Date: 20190221
  Receipt Date: 20241128
  Transmission Date: 20250115
  Serious: Yes (Hospitalization)
  Sender: PFIZER
  Company Number: CA-PFIZER INC-2019075078

PATIENT
  Age: 20 Week
  Sex: Male

DRUGS (3)
  1. RAPAMUNE [Suspect]
     Active Substance: SIROLIMUS
     Dosage: 0.4 MG/ML
     Dates: start: 20181220
  2. RAPAMUNE [Suspect]
     Active Substance: SIROLIMUS
     Dosage: 0.4 MG, DAILY
     Dates: start: 20190215
  3. RAPAMUNE [Suspect]
     Active Substance: SIROLIMUS
     Dosage: 1 MG

REACTIONS (2)
  - Drug level decreased [Unknown]
  - Off label use [Unknown]
